FAERS Safety Report 7593467-1 (Version None)
Quarter: 2011Q3

REPORT INFORMATION
  Report Type: 
  Country: None (occurrence: None)
  Receive Date: 20110706
  Receipt Date: 20110629
  Transmission Date: 20111222
  Serious: Yes (Hospitalization)
  Sender: FDA-Public Use
  Company Number: DK-PFIZER INC-2011007603

PATIENT
  Sex: Female

DRUGS (3)
  1. MINRIN [Suspect]
     Dosage: 3.75 UG, 1X/DAY
     Route: 050
     Dates: start: 19921123
  2. SOMATROPIN [Suspect]
     Indication: HYPOPITUITARISM
     Dosage: 0.1 MG, 1X/DAY
     Dates: start: 19960910
  3. HYDROCORTISONE [Concomitant]
     Dosage: 30 MG, 1X/DAY
     Route: 048
     Dates: start: 19921123

REACTIONS (2)
  - DISCOMFORT [None]
  - BLOOD SODIUM DECREASED [None]
